FAERS Safety Report 26025399 (Version 1)
Quarter: 2025Q4

REPORT INFORMATION
  Report Type: Spontaneous
  Country: CN (occurrence: CN)
  Receive Date: 20251111
  Receipt Date: 20251111
  Transmission Date: 20260118
  Serious: Yes (Other)
  Sender: ROCHE
  Company Number: CN-ROCHE-10000424442

PATIENT
  Age: 39 Year
  Sex: Female

DRUGS (24)
  1. PERTUZUMAB [Suspect]
     Active Substance: PERTUZUMAB
     Indication: Neoplasm malignant
     Route: 042
     Dates: start: 20250918, end: 20250918
  2. PERTUZUMAB [Suspect]
     Active Substance: PERTUZUMAB
     Indication: Invasive ductal breast carcinoma
  3. PERTUZUMAB [Suspect]
     Active Substance: PERTUZUMAB
     Indication: Breast cyst
  4. PERTUZUMAB [Suspect]
     Active Substance: PERTUZUMAB
     Indication: Leiomyoma
  5. PERTUZUMAB [Suspect]
     Active Substance: PERTUZUMAB
     Indication: Cholelithiasis
  6. PERTUZUMAB [Suspect]
     Active Substance: PERTUZUMAB
     Indication: Hepatic steatosis
  7. TRASTUZUMAB [Suspect]
     Active Substance: TRASTUZUMAB
     Indication: Neoplasm malignant
     Route: 042
     Dates: start: 20250918, end: 20250918
  8. TRASTUZUMAB [Suspect]
     Active Substance: TRASTUZUMAB
     Indication: Invasive ductal breast carcinoma
  9. TRASTUZUMAB [Suspect]
     Active Substance: TRASTUZUMAB
     Indication: Breast cyst
  10. TRASTUZUMAB [Suspect]
     Active Substance: TRASTUZUMAB
     Indication: Leiomyoma
  11. TRASTUZUMAB [Suspect]
     Active Substance: TRASTUZUMAB
     Indication: Cholelithiasis
  12. TRASTUZUMAB [Suspect]
     Active Substance: TRASTUZUMAB
     Indication: Hepatic steatosis
  13. PACLITAXEL [Suspect]
     Active Substance: PACLITAXEL
     Indication: Neoplasm malignant
     Route: 042
     Dates: start: 20250918, end: 20250918
  14. PACLITAXEL [Suspect]
     Active Substance: PACLITAXEL
     Indication: Invasive ductal breast carcinoma
  15. PACLITAXEL [Suspect]
     Active Substance: PACLITAXEL
     Indication: Breast cyst
  16. PACLITAXEL [Suspect]
     Active Substance: PACLITAXEL
     Indication: Leiomyoma
  17. PACLITAXEL [Suspect]
     Active Substance: PACLITAXEL
     Indication: Cholelithiasis
  18. PACLITAXEL [Suspect]
     Active Substance: PACLITAXEL
     Indication: Hepatic steatosis
  19. CARBOPLATIN [Suspect]
     Active Substance: CARBOPLATIN
     Indication: Neoplasm malignant
     Route: 042
     Dates: start: 20250918, end: 20250918
  20. CARBOPLATIN [Suspect]
     Active Substance: CARBOPLATIN
     Indication: Invasive ductal breast carcinoma
  21. CARBOPLATIN [Suspect]
     Active Substance: CARBOPLATIN
     Indication: Breast cyst
  22. CARBOPLATIN [Suspect]
     Active Substance: CARBOPLATIN
     Indication: Leiomyoma
  23. CARBOPLATIN [Suspect]
     Active Substance: CARBOPLATIN
     Indication: Cholelithiasis
  24. CARBOPLATIN [Suspect]
     Active Substance: CARBOPLATIN
     Indication: Hepatic steatosis

REACTIONS (1)
  - Hepatic function abnormal [Unknown]

NARRATIVE: CASE EVENT DATE: 20250925
